FAERS Safety Report 5724500-7 (Version None)
Quarter: 2008Q2

REPORT INFORMATION
  Report Type: 
  Country: None (occurrence: None)
  Receive Date: 20080429
  Receipt Date: 20080422
  Transmission Date: 20081010
  Serious: Yes (Death)
  Sender: FDA-Public Use
  Company Number: GXKR2008DE03837

PATIENT
  Age: 53 Year
  Sex: Male

DRUGS (4)
  1. CYCLOSPORINE [Suspect]
     Indication: IMMUNOSUPPRESSION
  2. CORTICOSTEROID NOS(CORTICOSTEROID NOS) UNKNOWN [Suspect]
     Indication: IMMUNOSUPPRESSION
  3. MYCOPHENOLATE MOFETIL [Suspect]
     Indication: IMMUNOSUPPRESSION
  4. MELPHALAN(MELPHALAN) UNKNOWN [Suspect]
     Indication: IMMUNOSUPPRESSION

REACTIONS (4)
  - AMYLOIDOSIS [None]
  - AUTOLOGOUS BONE MARROW TRANSPLANTATION THERAPY [None]
  - MELANOCYTIC NAEVUS [None]
  - METASTATIC MALIGNANT MELANOMA [None]
